FAERS Safety Report 22381531 (Version 6)
Quarter: 2023Q4

REPORT INFORMATION
  Report Type: Report from Study
  Country: US (occurrence: US)
  Receive Date: 20230530
  Receipt Date: 20231222
  Transmission Date: 20240109
  Serious: Yes (Hospitalization)
  Sender: FDA-Public Use
  Company Number: US-ABBVIE-4703424

PATIENT
  Sex: Female

DRUGS (11)
  1. SKYRIZI [Suspect]
     Active Substance: RISANKIZUMAB-RZAA
     Indication: Crohn^s disease
     Dosage: TIME INTERVAL: TOTAL: FORM STRENGTH: 360 MG  FIRST AND LAST ADMIN DATE WAS 2023
     Route: 058
  2. SKYRIZI [Suspect]
     Active Substance: RISANKIZUMAB-RZAA
     Dosage: DRUG END DATE: 2023?FORM STRENGTH: 360MG/2.4M
     Route: 058
     Dates: start: 20230408
  3. SKYRIZI [Suspect]
     Active Substance: RISANKIZUMAB-RZAA
     Dosage: FORM STRENGTH: 360MG/2.4M?WEEK 20
     Route: 058
     Dates: start: 20231124
  4. SKYRIZI [Suspect]
     Active Substance: RISANKIZUMAB-RZAA
     Dosage: 360MG/2.4M?LAST ADMIN DATE: 2023
     Route: 058
     Dates: start: 202306
  5. SKYRIZI [Suspect]
     Active Substance: RISANKIZUMAB-RZAA
     Dosage: FIRST ADMIN DATE: 2023?LAST ADMIN DATE: 2023
     Route: 058
  6. SKYRIZI [Suspect]
     Active Substance: RISANKIZUMAB-RZAA
     Route: 058
  7. AJOVY [Concomitant]
     Active Substance: FREMANEZUMAB-VFRM
     Indication: Migraine
  8. SKYRIZI [Suspect]
     Active Substance: RISANKIZUMAB-RZAA
     Indication: Crohn^s disease
     Dosage: TIME INTERVAL: TOTAL: WEEK 8
     Route: 042
     Dates: start: 20230306, end: 20230306
  9. SKYRIZI [Suspect]
     Active Substance: RISANKIZUMAB-RZAA
     Indication: Crohn^s disease
     Dosage: TIME INTERVAL: TOTAL: WEEK 0
     Route: 042
     Dates: start: 202301, end: 202301
  10. SKYRIZI [Suspect]
     Active Substance: RISANKIZUMAB-RZAA
     Indication: Crohn^s disease
     Dosage: TIME INTERVAL: TOTAL: WEEK 4
     Route: 042
     Dates: start: 202302, end: 202302
  11. BENADRYL [Concomitant]
     Active Substance: DIPHENHYDRAMINE HYDROCHLORIDE
     Indication: Product used for unknown indication

REACTIONS (36)
  - Cluster headache [Unknown]
  - Urinary tract infection [Not Recovered/Not Resolved]
  - Vision blurred [Recovered/Resolved]
  - Upper respiratory tract congestion [Unknown]
  - Gait inability [Unknown]
  - Vision blurred [Not Recovered/Not Resolved]
  - Therapeutic response shortened [Unknown]
  - Injection site pruritus [Recovered/Resolved]
  - Fatigue [Not Recovered/Not Resolved]
  - Therapeutic product effect incomplete [Unknown]
  - Crohn^s disease [Unknown]
  - Peripheral swelling [Recovering/Resolving]
  - Pain in extremity [Unknown]
  - Injection site swelling [Recovering/Resolving]
  - Sluggishness [Recovering/Resolving]
  - Peripheral swelling [Unknown]
  - Flatulence [Not Recovered/Not Resolved]
  - Hernia [Unknown]
  - Hypersomnia [Recovering/Resolving]
  - Unevaluable event [Unknown]
  - Faeces soft [Not Recovered/Not Resolved]
  - Frequent bowel movements [Not Recovered/Not Resolved]
  - Injection site mass [Recovered/Resolved]
  - Asthenia [Not Recovered/Not Resolved]
  - Pain [Not Recovered/Not Resolved]
  - Tooth disorder [Unknown]
  - Injection site pruritus [Recovered/Resolved]
  - Migraine [Not Recovered/Not Resolved]
  - Insomnia [Unknown]
  - Sleep apnoea syndrome [Unknown]
  - Osteoarthritis [Unknown]
  - Mobility decreased [Unknown]
  - Skin striae [Unknown]
  - Tooth extraction [Unknown]
  - Tooth fracture [Unknown]
  - Nasopharyngitis [Unknown]

NARRATIVE: CASE EVENT DATE: 20230101
